FAERS Safety Report 23652875 (Version 1)
Quarter: 2024Q1

REPORT INFORMATION
  Report Type: Spontaneous
  Country: PT (occurrence: PT)
  Receive Date: 20240320
  Receipt Date: 20240320
  Transmission Date: 20240409
  Serious: Yes (Other)
  Sender: FDA-Public Use
  Company Number: None

PATIENT
  Age: 53 Year
  Sex: Female
  Weight: 69 kg

DRUGS (4)
  1. ALBUTEROL [Suspect]
     Active Substance: ALBUTEROL
     Indication: Cough
     Dosage: 1 TOTAL, EMERGENCY SERVICE
     Route: 055
     Dates: start: 20240226, end: 20240226
  2. BUDESONIDE [Suspect]
     Active Substance: BUDESONIDE
     Indication: Cough
     Dosage: 1 TOTAL, IN THE CONTEXT OF AN EMERGENCY SERVICE
     Route: 055
     Dates: start: 20240226, end: 20240226
  3. IPRATROPIUM BROMIDE [Suspect]
     Active Substance: IPRATROPIUM BROMIDE\IPRATROPIUM BROMIDE ANHYDROUS
     Indication: Cough
     Dosage: EMERGENCY SERVICE
     Route: 055
     Dates: start: 20240226, end: 20240226
  4. AMLODIPINE BESYLATE\PERINDOPRIL ERBUMINE [Concomitant]
     Active Substance: AMLODIPINE BESYLATE\PERINDOPRIL ERBUMINE
     Indication: Product used for unknown indication
     Dosage: UNK
     Route: 048

REACTIONS (1)
  - Urticaria [Recovering/Resolving]

NARRATIVE: CASE EVENT DATE: 20240226
